FAERS Safety Report 7367927-2 (Version None)
Quarter: 2011Q1

REPORT INFORMATION
  Report Type: 
  Country: None (occurrence: None)
  Receive Date: 20110322
  Receipt Date: 20110317
  Transmission Date: 20110831
  Serious: Yes (Other)
  Sender: FDA-Public Use
  Company Number: CHPA2011GB00683

PATIENT

DRUGS (2)
  1. IBUPROFEN [Suspect]
     Dosage: MATERNAL DOSE: 3.2-12.8 G, UNK
     Route: 064
  2. PARACETAMOL [Suspect]
     Dosage: MATERNAL DOSE: 12.5 G, UNK
     Route: 064

REACTIONS (3)
  - PALATAL DISORDER [None]
  - MATERNAL DRUGS AFFECTING FOETUS [None]
  - DRUG EXPOSURE DURING PREGNANCY [None]
